FAERS Safety Report 9807081 (Version 1)
Quarter: 2014Q1

REPORT INFORMATION
  Report Type: Report from Study
  Country: US (occurrence: US)
  Receive Date: 20140110
  Receipt Date: 20140110
  Transmission Date: 20141002
  Serious: Yes (Death)
  Sender: FDA-Public Use
  Company Number: US-ROCHE-1331327

PATIENT
  Age: 66 Year
  Sex: Female

DRUGS (10)
  1. LUCENTIS [Suspect]
     Indication: DIABETIC RETINOPATHY
     Route: 050
  2. LUCENTIS [Suspect]
     Indication: DIABETIC RETINAL OEDEMA
  3. LUCENTIS [Suspect]
     Indication: RETINAL OEDEMA
  4. LUCENTIS [Suspect]
     Indication: DIABETIC EYE DISEASE
  5. ISTALOL [Concomitant]
     Route: 065
  6. TETRAVISC [Concomitant]
     Dosage: INSTILLED
     Route: 065
  7. VIGAMOX [Concomitant]
     Dosage: INSTILLED
     Route: 065
  8. OFLOXACIN [Concomitant]
     Route: 065
  9. MOXEZA [Concomitant]
     Dosage: INSTILLED
     Route: 065
  10. BROMDAY [Concomitant]
     Dosage: INSTILLED
     Route: 065

REACTIONS (10)
  - Death [Fatal]
  - Eye swelling [Recovering/Resolving]
  - Retinal disorder [Unknown]
  - Retinal haemorrhage [Unknown]
  - Retinal depigmentation [Unknown]
  - Diabetic retinopathy [Unknown]
  - Macular degeneration [Unknown]
  - Eye infection [Recovered/Resolved]
  - Eye discharge [Unknown]
  - Lacrimation increased [Unknown]
